FAERS Safety Report 23711041 (Version 2)
Quarter: 2024Q2

REPORT INFORMATION
  Report Type: Report from Study
  Country: CA (occurrence: CA)
  Receive Date: 20240405
  Receipt Date: 20240430
  Transmission Date: 20240716
  Serious: Yes (Other)
  Sender: FDA-Public Use
  Company Number: CA-JAMP PHARMA CORPORATION-2024-JAM-CA-00307

PATIENT
  Age: 69 Year
  Sex: Female

DRUGS (1)
  1. SIMLANDI [Suspect]
     Active Substance: ADALIMUMAB-RYVK
     Indication: Colitis ulcerative
     Dosage: 40 MG, EVERY OTHER WEEK
     Route: 058
     Dates: start: 20230921

REACTIONS (5)
  - Haematochezia [Unknown]
  - Rectal haemorrhage [Unknown]
  - Infrequent bowel movements [Unknown]
  - Gastrointestinal inflammation [Unknown]
  - Polyp [Unknown]

NARRATIVE: CASE EVENT DATE: 20240205
